FAERS Safety Report 5928921-9 (Version None)
Quarter: 2008Q4

REPORT INFORMATION
  Report Type: 
  Country: None (occurrence: None)
  Receive Date: 20081024
  Receipt Date: 20081017
  Transmission Date: 20090506
  Serious: Yes (Hospitalization, Other)
  Sender: FDA-Public Use
  Company Number: PHHO2008IT12482

PATIENT
  Sex: Male

DRUGS (1)
  1. NEORAL [Suspect]
     Indication: LIVER TRANSPLANT
     Dosage: UNK
     Route: 048
     Dates: start: 20080628

REACTIONS (3)
  - AUTOIMMUNE DISORDER [None]
  - CONCOMITANT DISEASE PROGRESSION [None]
  - HEPATITIS C VIRUS TEST [None]
